FAERS Safety Report 18430446 (Version 5)
Quarter: 2020Q4

REPORT INFORMATION
  Report Type: Spontaneous
  Country: JP (occurrence: JP)
  Receive Date: 20201027
  Receipt Date: 20201222
  Transmission Date: 20210114
  Serious: Yes (Hospitalization)
  Sender: FDA-Public Use
  Company Number: JP-CELGENEUS-JPN-20201004971

PATIENT
  Age: 62 Year
  Sex: Male
  Weight: 64.5 kg

DRUGS (29)
  1. ACICLOVIR [Concomitant]
     Active Substance: ACYCLOVIR
     Indication: ANTIVIRAL PROPHYLAXIS
     Dosage: 200 MILLIGRAM
     Route: 048
     Dates: start: 20190513, end: 20190816
  2. MAGNESIUM OXIDE. [Concomitant]
     Active Substance: MAGNESIUM OXIDE
     Indication: CONSTIPATION
     Route: 048
     Dates: start: 20190517
  3. CALCIUM LACTATE HYDRATE [Concomitant]
     Active Substance: CALCIUM LACTATE
     Dosage: 500 MILLIGRAM
     Route: 048
     Dates: start: 20191015
  4. LIDOCAINE. [Concomitant]
     Active Substance: LIDOCAINE
     Indication: BLOOD STEM CELL HARVEST
     Route: 061
     Dates: start: 20190820, end: 20190820
  5. CALCIUM GLUCONATE HYDRATE [Concomitant]
     Indication: PROPHYLAXIS
     Route: 041
     Dates: start: 20190820, end: 20190820
  6. MINOCYCLINE HYDROCHLORIDE. [Concomitant]
     Active Substance: MINOCYCLINE HYDROCHLORIDE
     Indication: OSTEONECROSIS OF JAW
     Route: 061
     Dates: start: 20201016
  7. CC-5013 [Suspect]
     Active Substance: LENALIDOMIDE
     Indication: PLASMA CELL MYELOMA
     Route: 048
     Dates: start: 20190514, end: 20201018
  8. LENADEX [Suspect]
     Active Substance: DEXAMETHASONE ACETATE
     Indication: PLASMA CELL MYELOMA
     Route: 048
     Dates: start: 20190514, end: 20201019
  9. RANMARK [Concomitant]
     Active Substance: DENOSUMAB
     Indication: PLASMA CELL MYELOMA
     Route: 058
     Dates: start: 20191021
  10. OLOPATADINE HYDROCHLORIDE. [Concomitant]
     Active Substance: OLOPATADINE HYDROCHLORIDE
     Dosage: 4 DROPS
     Route: 047
     Dates: start: 20200215, end: 20200331
  11. VELCADE [Suspect]
     Active Substance: BORTEZOMIB
     Indication: PLASMA CELL MYELOMA
     Route: 058
     Dates: start: 20190514, end: 20191111
  12. LEVOCETIRIZINE HYDROCHLORIDE [Concomitant]
     Active Substance: LEVOCETIRIZINE HYDROCHLORIDE
     Indication: SEASONAL ALLERGY
     Dosage: 5 MILLIGRAM
     Route: 048
     Dates: end: 20190427
  13. OLOPATADINE HYDROCHLORIDE. [Concomitant]
     Active Substance: OLOPATADINE HYDROCHLORIDE
     Indication: SEASONAL ALLERGY
     Dosage: 4 DROPS
     Route: 047
     Dates: end: 20190427
  14. FILGRASTIM [Concomitant]
     Active Substance: FILGRASTIM
     Indication: BLOOD STEM CELL HARVEST
     Dosage: UNKNOWN
     Route: 041
     Dates: start: 20190816, end: 20190820
  15. CEFCAPENE PIVOXIL HYDROCHLORIDE HYDRATE [Concomitant]
     Active Substance: CEFCAPENE PIVOXIL HYDROCHLORIDE HYDRATE
     Indication: OTITIS EXTERNA
     Dosage: 300 MILLIGRAM
     Route: 048
     Dates: start: 20191118, end: 20191122
  16. BAYASPIRIN [Concomitant]
     Active Substance: ASPIRIN
     Indication: THROMBOSIS PROPHYLAXIS
     Dosage: 100 MILLIGRAM
     Route: 048
     Dates: start: 20190503
  17. CALCIUM LACTATE HYDRATE [Concomitant]
     Active Substance: CALCIUM LACTATE
     Indication: PROPHYLAXIS
     Dosage: 1500 MILLIGRAM
     Route: 048
     Dates: start: 20190517, end: 2019
  18. RILMAZAFONE HYDROCHLORIDE [Concomitant]
     Active Substance: RILMAZAFONE HYDROCHLORIDE
     Indication: INSOMNIA
     Route: 048
     Dates: start: 20190604
  19. ACETAMINOPHEN. [Concomitant]
     Active Substance: ACETAMINOPHEN
     Indication: UPPER RESPIRATORY TRACT INFECTION
     Route: 048
     Dates: start: 20190701, end: 20190715
  20. AMOXICILLIN HYDRATE [Concomitant]
     Active Substance: AMOXICILLIN
     Indication: OSTEONECROSIS OF JAW
     Dosage: 750 MILLIGRAM
     Route: 048
     Dates: start: 20201016
  21. NEXIUM [Concomitant]
     Active Substance: ESOMEPRAZOLE MAGNESIUM
     Indication: GASTRITIS PROPHYLAXIS
     Dosage: 20 MILLIGRAM
     Route: 048
     Dates: start: 20190513
  22. ATORVASTATIN [Concomitant]
     Active Substance: ATORVASTATIN
     Indication: HYPERCHOLESTEROLAEMIA
     Dosage: 5 MILLIGRAM
     Route: 048
  23. LEVOCETIRIZINE HYDROCHLORIDE [Concomitant]
     Active Substance: LEVOCETIRIZINE HYDROCHLORIDE
     Dosage: 5 MILLIGRAM
     Route: 048
     Dates: start: 20200215, end: 20200331
  24. ASPIRIN. [Concomitant]
     Active Substance: ASPIRIN
     Indication: THROMBOSIS PROPHYLAXIS
     Dosage: 100 MILLIGRAM
     Route: 048
     Dates: start: 20190513, end: 20190816
  25. ESOMEPRAZOLE MAGNESIUM HYDRATE [Concomitant]
     Active Substance: ESOMEPRAZOLE MAGNESIUM
     Indication: GASTRITIS PROPHYLAXIS
     Dosage: 20 MILLIGRAM
     Route: 048
     Dates: start: 20190513
  26. OFLOXACIN. [Concomitant]
     Active Substance: OFLOXACIN
     Indication: OTITIS EXTERNA
     Dosage: 9 DROPS
     Route: 061
     Dates: start: 20191118, end: 20191125
  27. ACICLOVIR [Concomitant]
     Active Substance: ACYCLOVIR
     Dosage: 200 MILLIGRAM
     Route: 048
     Dates: start: 20190902
  28. ASPIRIN. [Concomitant]
     Active Substance: ASPIRIN
     Dosage: 100 MILLIGRAM
     Route: 048
     Dates: start: 20190902
  29. DENOSUMAB [Concomitant]
     Active Substance: DENOSUMAB
     Indication: PROPHYLAXIS
     Route: 041
     Dates: start: 20191021

REACTIONS (1)
  - COVID-19 [Recovered/Resolved]

NARRATIVE: CASE EVENT DATE: 20201017
